FAERS Safety Report 4417656-X (Version None)
Quarter: 2004Q2

REPORT INFORMATION
  Report Type: 
  Country: None (occurrence: None)
  Receive Date: 20040629
  Receipt Date: 20040226
  Transmission Date: 20050107
  Serious: Yes (Death, Hospitalization, Other)
  Sender: FDA-Public Use
  Company Number: USA040360572

PATIENT
  Age: 80 Year
  Sex: Male

DRUGS (2)
  1. HUMALOG [Suspect]
     Dosage: 42 U DAY
  2. INSULIN [Suspect]

REACTIONS (3)
  - DEATH [None]
  - HEPATIC NEOPLASM MALIGNANT [None]
  - LEUKAEMIA [None]
